FAERS Safety Report 8548391-4 (Version None)
Quarter: 2012Q3

REPORT INFORMATION
  Report Type: 
  Country: None (occurrence: None)
  Receive Date: 20120717
  Receipt Date: 20120704
  Transmission Date: 20120928
  Serious: Yes (Other)
  Sender: FDA-Public Use
  Company Number: JP-2012-15695

PATIENT
  Age: 86 Year
  Sex: Female

DRUGS (6)
  1. SAMSCA [Suspect]
     Indication: CARDIAC FAILURE CONGESTIVE
     Dosage: 7.5 MG MILLIGRAM(S), QD, ORAL; 15 MG MILLIGRAM(S), QD, ORAL
     Route: 048
     Dates: start: 20120606, end: 20120612
  2. SAMSCA [Suspect]
     Indication: CARDIAC FAILURE CONGESTIVE
     Dosage: 7.5 MG MILLIGRAM(S), QD, ORAL; 15 MG MILLIGRAM(S), QD, ORAL
     Route: 048
     Dates: start: 20120613, end: 20120622
  3. FUROSEMIDE [Concomitant]
  4. DIART (AZOSEMIDE) [Concomitant]
  5. HANP (CARPERITIDE) INJECTION [Concomitant]
  6. DOBUTAMINE HCL [Concomitant]

REACTIONS (3)
  - HYPERNATRAEMIA [None]
  - RAPID CORRECTION OF HYPONATRAEMIA [None]
  - SOMNOLENCE [None]
